FAERS Safety Report 9237178 (Version 1)
Quarter: 2013Q2

REPORT INFORMATION
  Report Type: Report from Study
  Country: US (occurrence: US)
  Receive Date: 20130417
  Receipt Date: 20130417
  Transmission Date: 20140414
  Serious: Yes (Hospitalization)
  Sender: FDA-Public Use
  Company Number: US-TEVA-397576USA

PATIENT
  Age: 87 Year
  Sex: Male
  Weight: 92.62 kg

DRUGS (19)
  1. IMIQUIMOD [Suspect]
     Indication: ACTINIC KERATOSIS
     Dosage: 1 APPLICATION
     Dates: start: 20130226, end: 20130311
  2. IMIQUIMOD [Suspect]
     Dosage: 1 APPLICATION
     Dates: start: 20130326, end: 20130401
  3. ALDARA [Suspect]
     Indication: ACTINIC KERATOSIS
     Dosage: 1 APPLICATION
     Dates: start: 20130226, end: 20130311
  4. ALDARA [Suspect]
     Dosage: 1 APPLICATION
     Dates: start: 20130326, end: 20130401
  5. HYDRALAZINE [Concomitant]
     Dates: start: 1995
  6. AMLODIPINE BESILATE [Concomitant]
     Dates: start: 1995
  7. ISOSORBIDE MONONITRATE [Concomitant]
     Dates: start: 2004
  8. CRESTOR [Concomitant]
     Dates: start: 2000
  9. ALLOPURINOL [Concomitant]
     Dates: start: 1990
  10. PAROXETINE [Concomitant]
     Dates: start: 2005
  11. HYDROCHLOROTHIAZIDE [Concomitant]
     Dates: start: 1995
  12. ASPIRIN [Concomitant]
     Dates: start: 2004
  13. FINASTERIDE [Concomitant]
  14. LANSOPRAZOLE [Concomitant]
  15. POTASSIUM [Concomitant]
  16. SIMETHICONE [Concomitant]
  17. MULTIVITAMIN [Concomitant]
     Dates: start: 2000
  18. VITAMIN D3 [Concomitant]
  19. BRILINTA? (TICAGRELOR) [Concomitant]
     Dates: start: 2004

REACTIONS (1)
  - Myocardial infarction [Recovering/Resolving]
